FAERS Safety Report 7371766-6 (Version None)
Quarter: 2011Q1

REPORT INFORMATION
  Report Type: 
  Country: None (occurrence: None)
  Receive Date: 20110324
  Receipt Date: 20110321
  Transmission Date: 20110831
  Serious: Yes (Death, Other)
  Sender: FDA-Public Use
  Company Number: PHHY2010DE83461

PATIENT
  Age: 71 Year
  Sex: Male

DRUGS (1)
  1. MYCOPHENOLIC ACID [Suspect]
     Indication: RENAL TRANSPLANT
     Dosage: 1440 MG, PER DAY
     Route: 048
     Dates: start: 20070327, end: 20080617

REACTIONS (10)
  - PNEUMONIA [None]
  - VANISHING BILE DUCT SYNDROME [None]
  - RETROPERITONEAL HAEMATOMA [None]
  - SEPSIS [None]
  - URINARY TRACT INFECTION [None]
  - BLOOD CREATININE INCREASED [None]
  - INFECTION [None]
  - RENAL FAILURE ACUTE [None]
  - HEPATIC FAILURE [None]
  - HYPERCHOLESTEROLAEMIA [None]
